FAERS Safety Report 9528049 (Version 1)
Quarter: 2013Q1

REPORT INFORMATION
  Report Type: Spontaneous
  Country: US (occurrence: None)
  Receive Date: 20130314
  Receipt Date: 20130314
  Transmission Date: 20140127
  Serious: No
  Sender: FDA-Public Use
  Company Number: 1212USA001119

PATIENT
  Age: 56 Year
  Sex: Male

DRUGS (1)
  1. VICTRELIS (BOCEPREVIR) CAPSULE, 200MG [Suspect]

REACTIONS (2)
  - Mental status changes [None]
  - Liver disorder [None]
